FAERS Safety Report 4822942-5 (Version None)
Quarter: 2005Q4

REPORT INFORMATION
  Report Type: 
  Country: None (occurrence: None)
  Receive Date: 20051107
  Receipt Date: 20051107
  Transmission Date: 20060501
  Serious: Yes (Other)
  Sender: FDA-Public Use
  Company Number: None

PATIENT
  Age: 69 Year
  Sex: Male
  Weight: 90.2658 kg

DRUGS (1)
  1. PRAMIPEXOLE    1 MG      BOEHRINGER INGELHEIM [Suspect]
     Indication: TREMOR
     Dosage: 1 MG  TID  PO
     Route: 048

REACTIONS (3)
  - ACTIVITIES OF DAILY LIVING IMPAIRED [None]
  - IMPAIRED DRIVING ABILITY [None]
  - SOMNOLENCE [None]
